FAERS Safety Report 19292963 (Version 1)
Quarter: 2021Q2

REPORT INFORMATION
  Report Type: Spontaneous
  Country: US (occurrence: US)
  Receive Date: 20210524
  Receipt Date: 20210524
  Transmission Date: 20210717
  Serious: No
  Sender: FDA-Public Use
  Company Number: US-SA-2017SA066871

PATIENT
  Age: 81 Year
  Sex: Female

DRUGS (2)
  1. VANDETANIB. [Suspect]
     Active Substance: VANDETANIB
     Dosage: 100MG ALTERNATING WITH 200MG EVERY OTHER DAY
     Route: 048
     Dates: start: 20161110
  2. VANDETANIB. [Suspect]
     Active Substance: VANDETANIB
     Indication: THYROID CANCER
     Dosage: 100 MG,QD
     Route: 048
     Dates: start: 20161110

REACTIONS (5)
  - Dry skin [Not Recovered/Not Resolved]
  - Blood magnesium decreased [Unknown]
  - Pollakiuria [Not Recovered/Not Resolved]
  - Product dose omission in error [Unknown]
  - Diarrhoea [Recovering/Resolving]
